FAERS Safety Report 4682318-0 (Version None)
Quarter: 2005Q2

REPORT INFORMATION
  Report Type: 
  Country: None (occurrence: None)
  Receive Date: 20050606
  Receipt Date: 20050524
  Transmission Date: 20051028
  Serious: Yes (Other)
  Sender: FDA-Public Use
  Company Number: IT-JNJFOC-20050600117

PATIENT
  Sex: Female

DRUGS (1)
  1. RISPERDAL [Suspect]
     Indication: DRUG USE FOR UNKNOWN INDICATION
     Route: 049

REACTIONS (5)
  - BINOCULAR EYE MOVEMENT DISORDER [None]
  - DIPLOPIA [None]
  - VISUAL DISTURBANCE [None]
  - VISUAL FIELD DEFECT [None]
  - XEROPHTHALMIA [None]
